FAERS Safety Report 8611553-1 (Version None)
Quarter: 2012Q3

REPORT INFORMATION
  Report Type: 
  Country: None (occurrence: None)
  Receive Date: 20120822
  Receipt Date: 20120820
  Transmission Date: 20120928
  Serious: Yes (Life-Threatening)
  Sender: FDA-Public Use
  Company Number: PHHO2012PL012082

PATIENT
  Sex: Male
  Weight: 83.5 kg

DRUGS (8)
  1. BLINDED NO TREATMENT RECEIVED [Suspect]
     Indication: CARDIAC FAILURE CHRONIC
     Dosage: CODE NOT BROKEN
     Dates: start: 20101019, end: 20120816
  2. HYDROCHLOROTHIAZIDE [Suspect]
     Dosage: 0.5 MG, QD
     Route: 048
     Dates: start: 20060307
  3. BLINDED LCZ696 [Suspect]
     Indication: CARDIAC FAILURE CHRONIC
     Dosage: CODE NOT BROKEN
     Dates: start: 20101019, end: 20120816
  4. ENALAPRIL MALEATE [Suspect]
     Indication: CARDIAC FAILURE CHRONIC
     Dosage: CODE NOT BROKEN
     Dates: start: 20101019, end: 20120816
  5. CARVEDILOL [Suspect]
     Indication: CARDIAC FAILURE
     Dosage: UNK
     Dates: start: 20060307
  6. DIGOXIN [Concomitant]
     Indication: ATRIAL FIBRILLATION
     Dosage: 0.25 MG, QD
     Dates: start: 20120302
  7. ACENOCOUMAROL [Concomitant]
     Indication: THROMBOSIS PROPHYLAXIS
     Dosage: 400 MG, BID
     Route: 048
     Dates: start: 20120307
  8. SIMVASTATIN [Concomitant]
     Indication: HYPERCHOLESTEROLAEMIA
     Dosage: 20 MG, QD
     Route: 048
     Dates: start: 20090730

REACTIONS (1)
  - LOSS OF CONSCIOUSNESS [None]
